FAERS Safety Report 11850394 (Version 1)
Quarter: 2015Q4

REPORT INFORMATION
  Report Type: Spontaneous
  Country: US (occurrence: US)
  Receive Date: 20151218
  Receipt Date: 20151218
  Transmission Date: 20160305
  Serious: No
  Sender: FDA-Public Use
  Company Number: US-JNJFOC-20151203914

PATIENT
  Age: 13 Year
  Sex: Female
  Weight: 42.18 kg

DRUGS (1)
  1. TYLENOL EXTRA STRENGTH [Suspect]
     Active Substance: ACETAMINOPHEN
     Indication: PRODUCT USED FOR UNKNOWN INDICATION
     Dosage: 4 TABLETS INSTEAD OF 2
     Route: 048
     Dates: start: 20151203, end: 20151203

REACTIONS (1)
  - Extra dose administered [Unknown]
